FAERS Safety Report 24331894 (Version 8)
Quarter: 2025Q2

REPORT INFORMATION
  Report Type: Report from Study
  Country: CO (occurrence: CO)
  Receive Date: 20240918
  Receipt Date: 20250418
  Transmission Date: 20250716
  Serious: Yes (Hospitalization, Other)
  Sender: ROCHE
  Company Number: CO-002147023-NVSC2024CO145848

PATIENT
  Age: 46 Year
  Sex: Female
  Weight: 54 kg

DRUGS (11)
  1. XOLAIR [Suspect]
     Active Substance: OMALIZUMAB
     Indication: Chronic spontaneous urticaria
     Dosage: 300 MG, QMO
     Route: 058
     Dates: start: 20240704, end: 202407
  2. XOLAIR [Suspect]
     Active Substance: OMALIZUMAB
     Indication: Urticaria
     Dosage: 300 MG, QMO
     Route: 058
     Dates: start: 20240910
  3. XOLAIR [Suspect]
     Active Substance: OMALIZUMAB
     Route: 065
     Dates: start: 202406
  4. XOLAIR [Suspect]
     Active Substance: OMALIZUMAB
     Dosage: 300 MG, QMO
     Route: 058
  5. XOLAIR [Suspect]
     Active Substance: OMALIZUMAB
     Route: 065
  6. LOSARTAN [Concomitant]
     Active Substance: LOSARTAN
     Indication: Product used for unknown indication
     Route: 065
     Dates: end: 202406
  7. LOSARTAN [Concomitant]
     Active Substance: LOSARTAN
     Dosage: 2 OF 50 MG, QD
     Route: 065
  8. LOSARTAN [Concomitant]
     Active Substance: LOSARTAN
     Dosage: 2 OF 50 MG, QD
     Route: 065
  9. CALCIUM [Concomitant]
     Active Substance: CALCIUM
  10. COLCHICINE [Concomitant]
     Active Substance: COLCHICINE
     Indication: Product used for unknown indication
  11. PREDNISOLONE [Concomitant]
     Active Substance: PREDNISOLONE
     Indication: Product used for unknown indication

REACTIONS (16)
  - Inflammation [Recovered/Resolved]
  - Swelling face [Unknown]
  - Choking [Unknown]
  - Rash [Recovered/Resolved]
  - Malaria [Unknown]
  - Eye allergy [Unknown]
  - Urticaria [Not Recovered/Not Resolved]
  - Respiratory disorder [Unknown]
  - Blepharitis [Not Recovered/Not Resolved]
  - Drug hypersensitivity [Recovering/Resolving]
  - Drug intolerance [Not Recovered/Not Resolved]
  - Blood pressure increased [Recovered/Resolved]
  - Still^s disease [Unknown]
  - Systemic lupus erythematosus [Unknown]
  - Erythema [Unknown]
  - Weight decreased [Recovering/Resolving]

NARRATIVE: CASE EVENT DATE: 20240910
